FAERS Safety Report 17266856 (Version 1)
Quarter: 2019Q4

REPORT INFORMATION
  Report Type: Spontaneous
  Country: US (occurrence: US)
  Receive Date: 20191219
  Receipt Date: 20191219
  Transmission Date: 20200122
  Serious: Yes (Other)
  Sender: FDA-Public Use
  Company Number: None

PATIENT
  Age: 35 Year
  Sex: Male
  Weight: 71 kg

DRUGS (1)
  1. BUPRENORPHINE NALOXONE [Suspect]
     Active Substance: BUPRENORPHINE\NALOXONE
     Dosage: ?          OTHER DOSE:8-2MG TABS;?
     Route: 060
     Dates: start: 20190717, end: 20191117

REACTIONS (4)
  - Pruritus [None]
  - Product substitution issue [None]
  - Rash [None]
  - Nausea [None]
